FAERS Safety Report 8041145-7 (Version None)
Quarter: 2012Q1

REPORT INFORMATION
  Report Type: 
  Country: None (occurrence: None)
  Receive Date: 20120112
  Receipt Date: 20120105
  Transmission Date: 20120608
  Serious: Yes (Hospitalization)
  Sender: FDA-Public Use
  Company Number: GR-AMGEN-GRCSP2011064715

PATIENT
  Age: 25 Year
  Sex: Female

DRUGS (2)
  1. PROLIA [Suspect]
     Dosage: 120 UNK, Q4WK
  2. PROLIA [Suspect]
     Indication: BONE GIANT CELL TUMOUR
     Dosage: 120 MG, QWK
     Dates: start: 20110101

REACTIONS (3)
  - OEDEMA PERIPHERAL [None]
  - DISEASE PROGRESSION [None]
  - GENERAL PHYSICAL HEALTH DETERIORATION [None]
